FAERS Safety Report 9283050 (Version 1)
Quarter: 2013Q2

REPORT INFORMATION
  Report Type: Report from Study
  Country: CA (occurrence: CA)
  Receive Date: 20130510
  Receipt Date: 20130510
  Transmission Date: 20140414
  Serious: Yes (Other)
  Sender: FDA-Public Use
  Company Number: CA-JNJFOC-20130503035

PATIENT
  Age: 45 Year
  Sex: Male
  Weight: 89 kg

DRUGS (8)
  1. REMICADE [Suspect]
     Indication: CROHN^S DISEASE
     Route: 042
     Dates: start: 20120522
  2. IMURAN [Concomitant]
     Route: 065
  3. TYLENOL 3 [Concomitant]
     Route: 065
  4. ARTHROTEC [Concomitant]
     Route: 065
  5. FLEXERIL [Concomitant]
     Route: 065
  6. CYMBALTA [Concomitant]
     Route: 065
  7. NEXIUM [Concomitant]
     Route: 065
  8. ZOPICLONE [Concomitant]
     Route: 065

REACTIONS (1)
  - Hydrocele [Recovering/Resolving]
